FAERS Safety Report 5162180-2 (Version None)
Quarter: 2006Q4

REPORT INFORMATION
  Report Type: 
  Country: None (occurrence: None)
  Receive Date: 20061121
  Receipt Date: 20061114
  Transmission Date: 20070319
  Serious: Yes (Other)
  Sender: FDA-Public Use
  Company Number: 2006BI011806

PATIENT
  Age: 60 Year
  Sex: Male

DRUGS (1)
  1. AVONEX [Suspect]
     Indication: RELAPSING-REMITTING MULTIPLE SCLEROSIS
     Dosage: 60 UG; QW; IM
     Route: 030
     Dates: start: 20040117

REACTIONS (4)
  - FALL [None]
  - FIBULA FRACTURE [None]
  - GENE MUTATION [None]
  - HUNTINGTON'S CHOREA [None]
